FAERS Safety Report 10197400 (Version 1)
Quarter: 2014Q2

REPORT INFORMATION
  Report Type: Spontaneous
  Country: US (occurrence: US)
  Receive Date: 20140527
  Receipt Date: 20140527
  Transmission Date: 20141212
  Serious: Yes (Hospitalization)
  Sender: FDA-Public Use
  Company Number: PHHY2014US064194

PATIENT
  Age: 76 Year
  Sex: Male

DRUGS (1)
  1. RIVASTIGMINE [Suspect]
     Indication: PARKINSON^S DISEASE
     Dosage: 13.3 MG, PER 24 HOURS
     Route: 062

REACTIONS (11)
  - Vision blurred [Unknown]
  - Lacrimation increased [Unknown]
  - Myalgia [Unknown]
  - Muscular weakness [Recovering/Resolving]
  - Salivary hypersecretion [Unknown]
  - Tremor [Recovering/Resolving]
  - Respiratory rate decreased [Unknown]
  - Blood pressure increased [Unknown]
  - Toxicity to various agents [Unknown]
  - Heart rate decreased [Unknown]
  - Overdose [Unknown]
